FAERS Safety Report 20127575 (Version 1)
Quarter: 2021Q4

REPORT INFORMATION
  Report Type: Spontaneous
  Country: US (occurrence: US)
  Receive Date: 20211129
  Receipt Date: 20211129
  Transmission Date: 20220303
  Serious: Yes (Other)
  Sender: FDA-Public Use
  Company Number: US-ALLERGAN-2140442US

PATIENT
  Sex: Female

DRUGS (3)
  1. SAPHRIS [Suspect]
     Active Substance: ASENAPINE MALEATE
     Indication: Product used for unknown indication
     Dosage: UNK
  2. VRAYLAR [Suspect]
     Active Substance: CARIPRAZINE
     Indication: Product used for unknown indication
     Dosage: UNK
  3. XANAX [Concomitant]
     Active Substance: ALPRAZOLAM
     Indication: Product used for unknown indication
     Dosage: UNK

REACTIONS (12)
  - Pregnancy [Unknown]
  - Perinatal depression [Unknown]
  - Hysterectomy [Unknown]
  - Abortion spontaneous [Unknown]
  - Weight increased [Unknown]
  - Dissociative identity disorder [Not Recovered/Not Resolved]
  - Migraine [Not Recovered/Not Resolved]
  - Therapy interrupted [Unknown]
  - Sleep disorder [Not Recovered/Not Resolved]
  - Sleep deficit [Unknown]
  - Nightmare [Unknown]
  - Drug ineffective [Unknown]

NARRATIVE: CASE EVENT DATE: 20110101
